FAERS Safety Report 8545282-X (Version None)
Quarter: 2012Q3

REPORT INFORMATION
  Report Type: 
  Country: None (occurrence: None)
  Receive Date: 20120727
  Receipt Date: 20120724
  Transmission Date: 20120928
  Serious: Yes (Other)
  Sender: FDA-Public Use
  Company Number: GB-BAYER-2012-074911

PATIENT
  Sex: Male

DRUGS (1)
  1. LEVITRA [Suspect]
     Dosage: UNK
     Dates: start: 20100101

REACTIONS (3)
  - MACULAR DEGENERATION [None]
  - RETINAL VEIN OCCLUSION [None]
  - VISUAL ACUITY REDUCED TRANSIENTLY [None]
